FAERS Safety Report 6354800-1 (Version None)
Quarter: 2009Q3

REPORT INFORMATION
  Report Type: 
  Country: None (occurrence: None)
  Receive Date: 20090909
  Receipt Date: 20090831
  Transmission Date: 20100115
  Serious: Yes (Other)
  Sender: FDA-Public Use
  Company Number: 2009SP022846

PATIENT
  Age: 82 Year
  Sex: Female

DRUGS (4)
  1. ELOCON [Suspect]
     Indication: PRURITUS
     Dosage: TOP
     Route: 061
     Dates: start: 20020101
  2. PREDNISOLONE [Suspect]
     Indication: MYALGIA
     Dosage: PO
     Route: 048
  3. DESOXIMETASONE [Suspect]
     Indication: PRURITUS
     Dosage: TOP
     Route: 061
     Dates: start: 20020101
  4. DERMOVAT (CLOBETASOL PROPIONATE) [Suspect]
     Indication: PRURITUS
     Dosage: TOP
     Route: 061
     Dates: start: 20020101

REACTIONS (4)
  - ECCHYMOSIS [None]
  - PHOTOSENSITIVITY REACTION [None]
  - SKIN ATROPHY [None]
  - SKIN HAEMORRHAGE [None]
